FAERS Safety Report 10764867 (Version 1)
Quarter: 2015Q1

REPORT INFORMATION
  Report Type: Spontaneous
  Country: US (occurrence: None)
  Receive Date: 20150204
  Receipt Date: 20150204
  Transmission Date: 20150721
  Serious: Yes (Death)
  Sender: FDA-Public Use
  Company Number: None

PATIENT
  Age: 82 Year
  Sex: Female
  Weight: 56.25 kg

DRUGS (9)
  1. CABOZANTINIB [Suspect]
     Active Substance: CABOZANTINIB
     Indication: THYROID CANCER
     Route: 048
     Dates: start: 20141002, end: 20141222
  2. OMEGA-3 FATTY ACIDS (FISH OIL) [Concomitant]
  3. METOPROLOL SUCCINATE (TOPROL XL) [Concomitant]
  4. PANTOPRAZOLE [Concomitant]
     Active Substance: PANTOPRAZOLE SODIUM
  5. EVENING PRIMROSE OIL [Concomitant]
     Active Substance: EVENING PRIMROSE OIL
  6. ASPIRIN (BABY ASPIRIN) [Concomitant]
  7. MAGNESIUM OXIDE. [Concomitant]
     Active Substance: MAGNESIUM OXIDE
  8. CALCIUM CARBONATE-VITAMIN D [Concomitant]
     Active Substance: CALCIUM CARBONATE\VITAMIN D
  9. ACETAMINOPHEN. [Concomitant]
     Active Substance: ACETAMINOPHEN

REACTIONS (8)
  - Dyspnoea exertional [None]
  - Chest pain [None]
  - Atrial fibrillation [None]
  - Toxicity to various agents [None]
  - Hiatus hernia [None]
  - Neoplasm progression [None]
  - Pulmonary embolism [None]
  - Lung infection [None]

NARRATIVE: CASE EVENT DATE: 20150111
